FAERS Safety Report 21433798 (Version 1)
Quarter: 2022Q4

REPORT INFORMATION
  Report Type: Spontaneous
  Country: NL (occurrence: NL)
  Receive Date: 20221010
  Receipt Date: 20221010
  Transmission Date: 20230113
  Serious: Yes (Hospitalization, Other)
  Sender: FDA-Public Use
  Company Number: NL-LRB-00830615

PATIENT
  Sex: Female
  Weight: 96 kg

DRUGS (4)
  1. AZITHROMYCIN [Suspect]
     Active Substance: AZITHROMYCIN
     Indication: Oropharyngeal pain
     Dosage: UNK 2 X A DAY 1
     Route: 065
     Dates: start: 20220820, end: 20220827
  2. CLOZAPINE [Suspect]
     Active Substance: CLOZAPINE
     Indication: Psychotic disorder
     Dosage: UNK 1X A DAY 1.5 PIECE
     Route: 065
     Dates: start: 20080101, end: 20220831
  3. FLUCONAZOLE [Suspect]
     Active Substance: FLUCONAZOLE
     Indication: Fungal infection
     Dosage: 100 MILLIGRAM, ONCE A DAY (1 X PER DAY 2)
     Route: 065
     Dates: start: 20220822
  4. METAMIZOL [Suspect]
     Active Substance: METAMIZOLE SODIUM
     Indication: Pain
     Dosage: 1000 MILLIGRAM, FOUR TIMES/DAY (4X A DAY 2)
     Route: 065
     Dates: start: 20220617, end: 20220831

REACTIONS (1)
  - Agranulocytosis [Recovered/Resolved]
